FAERS Safety Report 25906009 (Version 1)
Quarter: 2025Q4

REPORT INFORMATION
  Report Type: Spontaneous
  Country: US (occurrence: None)
  Receive Date: 20251009
  Receipt Date: 20251009
  Transmission Date: 20260118
  Serious: Yes (Other)
  Sender: FDA-CTU
  Company Number: None

PATIENT
  Age: 58 Year
  Sex: Male

DRUGS (1)
  1. LENALIDOMIDE [Suspect]
     Active Substance: LENALIDOMIDE
     Dosage: 5MG 21 DAYS ON 7 OFF ?

REACTIONS (5)
  - Flatulence [None]
  - Constipation [None]
  - Insomnia [None]
  - Blood pressure decreased [None]
  - Pollakiuria [None]
